FAERS Safety Report 5470426-6 (Version None)
Quarter: 2007Q3

REPORT INFORMATION
  Report Type: 
  Country: None (occurrence: None)
  Receive Date: 20070820
  Receipt Date: 20070508
  Transmission Date: 20080115
  Serious: No
  Sender: FDA-Public Use
  Company Number: WAES 0705USA01867

PATIENT
  Age: 69 Year
  Sex: Female

DRUGS (7)
  1. JANUVIA [Suspect]
     Indication: TYPE 2 DIABETES MELLITUS
     Dosage: 100 MG/DAILY/PO
     Route: 048
     Dates: start: 20070201, end: 20070507
  2. ACTOS [Concomitant]
  3. ATACAND [Concomitant]
  4. CRESTOR [Concomitant]
  5. OMACOR [Concomitant]
  6. TRICOR [Concomitant]
  7. VESICARE [Concomitant]

REACTIONS (1)
  - ALOPECIA [None]
